FAERS Safety Report 14947978 (Version 1)
Quarter: 2018Q2

REPORT INFORMATION
  Report Type: Report from Study
  Country: US (occurrence: US)
  Receive Date: 20180529
  Receipt Date: 20180529
  Transmission Date: 20180711
  Serious: No
  Sender: FDA-Public Use
  Company Number: PHEH2018US019940

PATIENT
  Sex: Male

DRUGS (1)
  1. TAFINLAR [Suspect]
     Active Substance: DABRAFENIB MESYLATE
     Dosage: 2 DF, BID
     Route: 048

REACTIONS (5)
  - Chills [Unknown]
  - Dyspnoea [Unknown]
  - Cough [Unknown]
  - Pyrexia [Unknown]
  - Rash [Unknown]
